FAERS Safety Report 8307573-7 (Version None)
Quarter: 2012Q2

REPORT INFORMATION
  Report Type: 
  Country: None (occurrence: None)
  Receive Date: 20120424
  Receipt Date: 20120420
  Transmission Date: 20120825
  Serious: Yes (Other)
  Sender: FDA-Public Use
  Company Number: US-PFIZER INC-2012099619

PATIENT
  Sex: Male
  Weight: 143.8 kg

DRUGS (5)
  1. LYRICA [Suspect]
     Indication: NEURALGIA
     Dosage: 50 MG, 1X/DAY
     Route: 048
     Dates: start: 20120101
  2. EFFEXOR XR [Concomitant]
     Dosage: UNK
  3. DIOVAN [Concomitant]
     Indication: HYPERTENSION
     Dosage: 80 MG, UNK
  4. SYNTHROID [Concomitant]
     Indication: HYPOTHYROIDISM
     Dosage: UNK
  5. EFFEXOR XR [Concomitant]
     Indication: DEPRESSION
     Dosage: UNK

REACTIONS (4)
  - DRY MOUTH [None]
  - MOOD SWINGS [None]
  - IRRITABILITY [None]
  - WEIGHT INCREASED [None]
